FAERS Safety Report 6121903 (Version 17)
Quarter: 2013Q3

REPORT INFORMATION
  Report Type: Spontaneous
  Country: US (occurrence: US)
  Receive Date: 20060906
  Receipt Date: 20130830
  Transmission Date: 20140515
  Serious: Yes (Death, Hospitalization, Other)
  Sender: FDA-Public Use
  Company Number: PHEH2006US07334

PATIENT
  Age: 42 Year
  Sex: Female

DRUGS (45)
  1. AREDIA [Suspect]
     Indication: BREAST CANCER
     Dosage: 90 MG,
     Route: 042
     Dates: start: 200309, end: 20060107
  2. ZOMETA [Suspect]
     Indication: METASTASES TO BONE
     Dosage: 4 MG,
     Route: 042
     Dates: start: 20060317, end: 20060317
  3. ZOMETA [Suspect]
     Dosage: 4 MG,
     Route: 042
  4. GEMCITABINE HYDROCHLORIDE [Concomitant]
     Indication: BREAST CANCER
     Dates: start: 20051024, end: 20060324
  5. ANTINEOPLASTIC AGENTS [Concomitant]
  6. LASIX [Concomitant]
     Dosage: 80 MG, QD
     Route: 048
  7. LASIX [Concomitant]
     Route: 042
  8. MICRO-K [Concomitant]
     Route: 048
  9. LEXAPRO [Concomitant]
     Dosage: 20 MG, QD
     Route: 048
  10. ACETYLSALICYLIC ACID [Concomitant]
     Dosage: 81 MG, QD
     Route: 048
  11. SYNTHROID [Concomitant]
     Dosage: 0.05 MG, QD
     Route: 048
  12. MARINOL [Concomitant]
     Dosage: 10 MG, BID
     Route: 048
  13. DURAGESIC [Concomitant]
     Dosage: 100 UG, 4 PATCHES Q72H TO SKIN
     Route: 062
  14. PROCRIT [Concomitant]
     Dosage: 40000 IU, QW
  15. XANAX [Concomitant]
     Dosage: 0.5 MG, TID
     Route: 048
  16. PHENERGAN ^WYETH-AYERST^ [Concomitant]
     Indication: NAUSEA
     Dosage: 25 MG, Q6H PRN
     Route: 048
  17. HYDROCODONE [Concomitant]
     Indication: PAIN IN JAW
  18. BUSPAR [Concomitant]
  19. MS CONTIN [Concomitant]
  20. PREDNISONE [Concomitant]
  21. PERIDEX [Concomitant]
  22. PROTONIX ^PHARMACIA^ [Concomitant]
  23. METHADONE [Concomitant]
  24. GEMCITABINE [Concomitant]
  25. ZOFRAN [Concomitant]
  26. VANCOMYCIN [Concomitant]
  27. ROCEPHIN [Concomitant]
  28. VIOXX [Concomitant]
  29. GENTAMYCIN-MP [Concomitant]
  30. ZOLADEX [Concomitant]
  31. RADIATION [Concomitant]
  32. OXYCODONE [Concomitant]
  33. COMPAZINE [Concomitant]
  34. LEVOTHYROXINE [Concomitant]
  35. PRILOSEC [Concomitant]
  36. ASPIRIN [Concomitant]
  37. MULTIVITAMIN [Concomitant]
  38. ACTIQ [Concomitant]
  39. CYCLOBENZAPRINE [Concomitant]
  40. INDOMETHACIN [Concomitant]
  41. SPIRONOLACTONE [Concomitant]
  42. ANZEMET [Concomitant]
  43. TAXOL [Concomitant]
  44. KEFLEX                                  /UNK/ [Concomitant]
  45. FASLODEX [Concomitant]
     Indication: BREAST CANCER METASTATIC

REACTIONS (82)
  - Death [Fatal]
  - Streptococcal sepsis [Unknown]
  - Streptococcal infection [Unknown]
  - Malnutrition [Unknown]
  - Breast cancer metastatic [Unknown]
  - Multiple fractures [Unknown]
  - Fibula fracture [Unknown]
  - Local swelling [Recovering/Resolving]
  - Erythema [Not Recovered/Not Resolved]
  - Tenderness [Not Recovered/Not Resolved]
  - Pyrexia [Recovered/Resolved]
  - Osteonecrosis of jaw [Unknown]
  - Impaired healing [Not Recovered/Not Resolved]
  - General physical health deterioration [Unknown]
  - Anxiety [Unknown]
  - Decreased interest [Unknown]
  - Pain in jaw [Not Recovered/Not Resolved]
  - Osteomyelitis [Unknown]
  - Tooth infection [Unknown]
  - Bone disorder [Unknown]
  - Seroma [Unknown]
  - Wound complication [Recovering/Resolving]
  - Inflammation [Unknown]
  - Peptostreptococcus infection [Unknown]
  - Bacterial infection [Unknown]
  - Bone pain [Unknown]
  - Implant site discharge [Unknown]
  - Dental fistula [Unknown]
  - Hip fracture [Unknown]
  - Hypercalcaemia [Unknown]
  - Rhinitis allergic [Unknown]
  - Neuropathy peripheral [Unknown]
  - Bronchitis [Unknown]
  - Upper respiratory tract infection [Unknown]
  - Hyperglycaemia [Unknown]
  - Glycosylated haemoglobin increased [Unknown]
  - Blood glucose increased [Unknown]
  - Musculoskeletal chest pain [Unknown]
  - Pollakiuria [Unknown]
  - Constipation [Unknown]
  - Bone marrow failure [Unknown]
  - Leukopenia [Unknown]
  - Thrombocytopenia [Unknown]
  - Anaemia [Unknown]
  - Neutropenia [Unknown]
  - Hypokalaemia [Unknown]
  - Depression [Unknown]
  - Metastases to bone [Unknown]
  - Oral candidiasis [Unknown]
  - Hypoalbuminaemia [Unknown]
  - Hypoproteinaemia [Unknown]
  - Device related infection [Unknown]
  - Mycobacterium tuberculosis complex test positive [Unknown]
  - Cholecystitis [Unknown]
  - Gallbladder cholesterolosis [Unknown]
  - Osteopenia [Unknown]
  - Oedema [Unknown]
  - Hypoaesthesia [Unknown]
  - Paraesthesia [Unknown]
  - Increased tendency to bruise [Unknown]
  - Sinus tachycardia [Unknown]
  - Gait disturbance [Unknown]
  - Pathological fracture [Unknown]
  - Coronary artery disease [Unknown]
  - Hypertension [Unknown]
  - Gingivitis [Recovering/Resolving]
  - Vasculitis [Recovering/Resolving]
  - Lymphoedema [Recovering/Resolving]
  - Platelet count increased [Recovering/Resolving]
  - Liver function test abnormal [Recovering/Resolving]
  - Weight decreased [Recovering/Resolving]
  - Prothrombin time prolonged [Unknown]
  - Pulmonary mass [Unknown]
  - Bone swelling [Unknown]
  - Back pain [Unknown]
  - Fall [Unknown]
  - Leukocytosis [Unknown]
  - Azotaemia [Unknown]
  - Osteoarthritis [Unknown]
  - Scoliosis [Unknown]
  - Cerebral atrophy [Unknown]
  - Hypercalcaemia of malignancy [Unknown]
